FAERS Safety Report 21080280 (Version 2)
Quarter: 2022Q3

REPORT INFORMATION
  Report Type: Spontaneous
  Country: GB (occurrence: GB)
  Receive Date: 20220714
  Receipt Date: 20220720
  Transmission Date: 20221027
  Serious: Yes (Disabling, Other)
  Sender: FDA-Public Use
  Company Number: GB-EBEWE-1099Carbo09

PATIENT
  Age: 73 Year
  Sex: Male
  Weight: 81 kg

DRUGS (12)
  1. PEMETREXED [Suspect]
     Active Substance: PEMETREXED
     Indication: Mesothelioma
     Dosage: 1000 MILLIGRAM (1000 MG, UNK)
     Route: 042
     Dates: start: 20090410, end: 20090716
  2. CARBOPLATIN [Suspect]
     Active Substance: CARBOPLATIN
     Indication: Mesothelioma
     Dosage: 660 MILLIGRAM (660 MG, UNK)
     Route: 042
     Dates: start: 20090410, end: 20090425
  3. DEXAMETHASONE [Concomitant]
     Active Substance: DEXAMETHASONE
     Indication: Chemotherapy
     Dosage: UNKNOWN
     Route: 065
  4. DEXAMETHASONE [Concomitant]
     Active Substance: DEXAMETHASONE
     Indication: Supportive care
     Dosage: 4 MILLIGRAM, ONCE A DAY (4 MG, QD)
     Route: 048
     Dates: start: 20090409, end: 20090617
  5. FOLIC ACID [Concomitant]
     Active Substance: FOLIC ACID
     Indication: Supportive care
     Dosage: UNK
     Route: 065
  6. FOLIC ACID [Concomitant]
     Active Substance: FOLIC ACID
     Indication: Chemotherapy
     Dosage: 400 MICROGRAM, ONCE A DAY (400 UG, QD)
     Route: 048
     Dates: start: 20090403
  7. HYDROXOCOBALAMIN [Concomitant]
     Active Substance: HYDROXOCOBALAMIN
     Indication: Chemotherapy
     Dosage: UNK
     Route: 065
  8. HYDROXOCOBALAMIN [Concomitant]
     Active Substance: HYDROXOCOBALAMIN
     Indication: Supportive care
     Dosage: 1 MILLIGRAM (1 MG, UNK (9 WEEK))
     Route: 030
     Dates: start: 20090403
  9. METOCLOPRAMIDE [Concomitant]
     Active Substance: METOCLOPRAMIDE
     Indication: Chemotherapy
     Dosage: UNK
     Route: 065
  10. METOCLOPRAMIDE [Concomitant]
     Active Substance: METOCLOPRAMIDE
     Indication: Supportive care
     Dosage: 10 MILLIGRAM, 3 TIMES A DAY (10 MG, TID)
     Route: 048
     Dates: start: 20090410, end: 20090617
  11. ONDANSETRON [Concomitant]
     Active Substance: ONDANSETRON
     Indication: Chemotherapy
     Dosage: UNK
     Route: 065
  12. ONDANSETRON [Concomitant]
     Active Substance: ONDANSETRON
     Indication: Supportive care
     Dosage: 8 MILLIGRAM (8 MG, UNK)
     Route: 042
     Dates: start: 20090410, end: 20090616

REACTIONS (2)
  - Abdominal pain upper [Recovered/Resolved]
  - Flushing [Recovered/Resolved]

NARRATIVE: CASE EVENT DATE: 20090625
